FAERS Safety Report 10380946 (Version 2)
Quarter: 2014Q3

REPORT INFORMATION
  Report Type: Spontaneous
  Country: JP (occurrence: JP)
  Receive Date: 20140813
  Receipt Date: 20140828
  Transmission Date: 20150326
  Serious: Yes (Death, Life-Threatening)
  Sender: FDA-Public Use
  Company Number: JP-009507513-1408JPN003379

PATIENT
  Age: 73 Year
  Sex: Male
  Weight: 67 kg

DRUGS (19)
  1. CANCIDAS [Suspect]
     Active Substance: CASPOFUNGIN ACETATE
     Indication: FEBRILE NEUTROPENIA
     Dosage: 50 MG, QD
     Route: 041
     Dates: start: 20140720, end: 20140723
  2. CYLOCIDE [Concomitant]
     Active Substance: CYTARABINE
     Indication: MYELODYSPLASTIC SYNDROME
     Dosage: 18 MG, BID
     Route: 051
     Dates: start: 20140718, end: 20140720
  3. SAMSCA [Concomitant]
     Active Substance: TOLVAPTAN
     Indication: CARDIAC FAILURE CHRONIC
     Dosage: 7.5 MG, QD
     Route: 048
     Dates: start: 20140714, end: 20140722
  4. ALDACTONE [Concomitant]
     Active Substance: SPIRONOLACTONE
     Indication: CARDIAC FAILURE CHRONIC
     Dosage: 25 MG, QD
     Route: 048
     Dates: start: 20140710, end: 20140723
  5. TRANSAMIN [Concomitant]
     Active Substance: TRANEXAMIC ACID
     Indication: EPISTAXIS
     Dosage: 250 MG, TID
     Route: 048
     Dates: start: 20140605, end: 20140722
  6. SOLU-MEDROL [Concomitant]
     Active Substance: METHYLPREDNISOLONE SODIUM SUCCINATE
     Indication: MYELODYSPLASTIC SYNDROME
     Dosage: 125 MG, QD
     Route: 051
     Dates: start: 20140722, end: 20140723
  7. PARIET [Concomitant]
     Active Substance: RABEPRAZOLE SODIUM
     Indication: GASTROOESOPHAGEAL REFLUX DISEASE
     Dosage: 10 MG, QD
     Route: 048
     Dates: start: 20140605, end: 20140722
  8. MERISLON [Concomitant]
     Active Substance: BETAHISTINE MESILATE
     Indication: DIZZINESS
     Dosage: 6 MG, QD
     Route: 048
     Dates: start: 20140605, end: 20140722
  9. METHYCOBAL [Concomitant]
     Active Substance: METHYLCOBALAMIN
     Indication: NEUROPATHY PERIPHERAL
     Dosage: 500 MICROGRAM, TID
     Route: 048
     Dates: start: 20140605, end: 20140722
  10. VANCOMYCIN HYDROCHLORIDE. [Concomitant]
     Active Substance: VANCOMYCIN HYDROCHLORIDE
     Indication: PNEUMONIA
     Dosage: 1 G, QD
     Route: 051
     Dates: start: 20140719, end: 20140722
  11. EXJADE [Concomitant]
     Active Substance: DEFERASIROX
     Indication: IRON OVERLOAD
     Dosage: 500 MG, QD
     Route: 048
     Dates: start: 20140605, end: 20140722
  12. BAKTAR [Concomitant]
     Active Substance: SULFAMETHOXAZOLE\TRIMETHOPRIM
     Indication: PNEUMONIA
     Dosage: 2 DOSAGE FORM, QW
     Route: 048
     Dates: start: 20140605, end: 20140722
  13. CRAVIT [Concomitant]
     Active Substance: LEVOFLOXACIN
     Indication: PNEUMONIA
     Dosage: 500 MG, QD
     Route: 051
     Dates: start: 20140721, end: 20140723
  14. HYDREA [Concomitant]
     Active Substance: HYDROXYUREA
     Indication: MYELODYSPLASTIC SYNDROME
     Dosage: 500 MG, TID
     Route: 048
     Dates: start: 20140722, end: 20140723
  15. CANCIDAS [Suspect]
     Active Substance: CASPOFUNGIN ACETATE
     Indication: FEBRILE NEUTROPENIA
     Dosage: 70 MG, QD
     Route: 041
     Dates: start: 20140719, end: 20140719
  16. MAXIPIME [Concomitant]
     Active Substance: CEFEPIME HYDROCHLORIDE
     Indication: PNEUMONIA
     Dosage: 1 G, BID
     Route: 051
     Dates: start: 20140718, end: 20140721
  17. VENOGLOBULIN-IH [Concomitant]
     Indication: INFECTION
     Dosage: 5 G, QD
     Route: 051
     Dates: start: 20140721, end: 20140723
  18. FEBURIC [Concomitant]
     Active Substance: FEBUXOSTAT
     Indication: HYPERURICAEMIA
     Dosage: 20 MG, QD
     Route: 048
     Dates: start: 20140712, end: 20140723
  19. GASMOTIN [Concomitant]
     Active Substance: MOSAPRIDE CITRATE
     Indication: GASTRITIS
     Dosage: 5 MG, TID
     Route: 048
     Dates: start: 20140605, end: 20140722

REACTIONS (7)
  - C-reactive protein increased [Fatal]
  - Neutrophil count increased [Not Recovered/Not Resolved]
  - Pneumonia bacterial [Fatal]
  - Infection [Fatal]
  - Blood lactate dehydrogenase increased [Fatal]
  - Myelodysplastic syndrome [Not Recovered/Not Resolved]
  - White blood cell count increased [Fatal]

NARRATIVE: CASE EVENT DATE: 20140719
